FAERS Safety Report 6905138-2 (Version None)
Quarter: 2010Q3

REPORT INFORMATION
  Report Type: 
  Country: None (occurrence: None)
  Receive Date: 20100804
  Receipt Date: 20091006
  Transmission Date: 20110219
  Serious: No
  Sender: FDA-Public Use
  Company Number: US-PFIZER INC-2009218867

PATIENT
  Sex: Female
  Weight: 57.596 kg

DRUGS (13)
  1. LYRICA [Suspect]
     Indication: LUMBAR SPINAL STENOSIS
     Dosage: 75 MG, 2X/DAY
     Dates: start: 20090501, end: 20090523
  2. LYRICA [Suspect]
     Indication: PAIN
  3. OXYCONTIN [Suspect]
     Indication: PAIN
     Dosage: 10 MG, UNK
     Dates: start: 20090501
  4. ACTONEL [Concomitant]
     Dosage: UNK
  5. ATENOLOL [Concomitant]
     Dosage: UNK
  6. HYDROCHLOROTHIAZIDE [Concomitant]
     Dosage: UNK
  7. PRILOSEC [Concomitant]
     Dosage: UNK
  8. CALCIUM [Concomitant]
     Dosage: UNK
  9. CHONDROITIN/GLUCOSAMINE [Concomitant]
     Dosage: UNK
  10. VITAMIN TAB [Concomitant]
     Dosage: UNK
  11. AGGRENOX [Concomitant]
     Dosage: UNK
  12. MULTIVITAMIN [Concomitant]
     Dosage: UNK
  13. FISH OIL [Concomitant]
     Dosage: UNK

REACTIONS (5)
  - CONFUSIONAL STATE [None]
  - FEELING ABNORMAL [None]
  - FEELING DRUNK [None]
  - ILL-DEFINED DISORDER [None]
  - MEMORY IMPAIRMENT [None]
